FAERS Safety Report 8043769-X (Version None)
Quarter: 2012Q1

REPORT INFORMATION
  Report Type: 
  Country: None (occurrence: None)
  Receive Date: 20120113
  Receipt Date: 20120103
  Transmission Date: 20120608
  Serious: No
  Sender: FDA-Public Use
  Company Number: US-BIOGENIDEC-2011BI029291

PATIENT
  Age: 66 Year
  Sex: Female

DRUGS (7)
  1. PREDNISONE [Concomitant]
     Indication: PREMEDICATION
     Dates: start: 20110901
  2. AVONEX [Concomitant]
     Indication: MULTIPLE SCLEROSIS
     Route: 030
     Dates: start: 20030928
  3. TYSABRI [Suspect]
     Indication: MULTIPLE SCLEROSIS
     Route: 042
     Dates: start: 20110629
  4. GENERIC ZANTAC [Concomitant]
     Indication: PREMEDICATION
     Dates: start: 20111201
  5. DECADRON [Concomitant]
     Indication: PREMEDICATION
     Dates: start: 20111201
  6. ZYRTEC [Concomitant]
     Indication: PREMEDICATION
     Dates: start: 20111201
  7. BENADRYL [Concomitant]
     Indication: PREMEDICATION
     Route: 048
     Dates: start: 20110801, end: 20111101

REACTIONS (7)
  - BLOOD GLUCOSE INCREASED [None]
  - EAR PRURITUS [None]
  - THROAT IRRITATION [None]
  - CHILLS [None]
  - RASH PRURITIC [None]
  - ACNE [None]
  - HYPERSENSITIVITY [None]
